FAERS Safety Report 11646771 (Version 1)
Quarter: 2015Q4

REPORT INFORMATION
  Report Type: Spontaneous
  Country: US (occurrence: US)
  Receive Date: 20151020
  Receipt Date: 20151020
  Transmission Date: 20160304
  Serious: No
  Sender: FDA-Public Use
  Company Number: US-ROCHE-ITM201505IM015337

PATIENT
  Sex: Female
  Weight: 92.16 kg

DRUGS (4)
  1. IMODIUM [Concomitant]
     Active Substance: LOPERAMIDE HYDROCHLORIDE
  2. OXYGEN. [Concomitant]
     Active Substance: OXYGEN
  3. METFORMIN [Concomitant]
     Active Substance: METFORMIN HYDROCHLORIDE
     Route: 065
  4. ESBRIET [Suspect]
     Active Substance: PIRFENIDONE
     Indication: IDIOPATHIC PULMONARY FIBROSIS
     Route: 048
     Dates: start: 20150520

REACTIONS (6)
  - Joint swelling [Unknown]
  - Insomnia [Unknown]
  - Weight increased [Unknown]
  - Dyspnoea [Unknown]
  - Cough [Unknown]
  - Diarrhoea [Unknown]
